FAERS Safety Report 7974617-1 (Version None)
Quarter: 2011Q4

REPORT INFORMATION
  Report Type: 
  Country: None (occurrence: None)
  Receive Date: 20111213
  Receipt Date: 20111130
  Transmission Date: 20120403
  Serious: Yes (Hospitalization, Other)
  Sender: FDA-Public Use
  Company Number: IE-ACTELION-A-CH2011-57751

PATIENT
  Age: 32 Year
  Sex: Male

DRUGS (3)
  1. WARFARIN SODIUM [Concomitant]
  2. TRACLEER [Suspect]
     Indication: PULMONARY HYPERTENSION
     Dosage: UNK
     Route: 048
  3. SILDENAFIL [Concomitant]

REACTIONS (9)
  - COUGH [None]
  - CONDITION AGGRAVATED [None]
  - WEIGHT DECREASED [None]
  - PULMONARY HYPERTENSION [None]
  - PYREXIA [None]
  - PULMONARY HAEMORRHAGE [None]
  - WEGENER'S GRANULOMATOSIS [None]
  - ENDARTERECTOMY [None]
  - MALAISE [None]
